FAERS Safety Report 17331916 (Version 4)
Quarter: 2020Q1

REPORT INFORMATION
  Report Type: Report from Study
  Country: None (occurrence: CA)
  Receive Date: 20200127
  Receipt Date: 20200320
  Transmission Date: 20200409
  Serious: Yes (Hospitalization)
  Sender: FDA-Public Use
  Company Number: CA-ABBVIE-20K-028-3249076-00

PATIENT
  Age: 51 Year
  Sex: Female

DRUGS (2)
  1. HUMIRA [Suspect]
     Active Substance: ADALIMUMAB
     Indication: HIDRADENITIS
     Route: 058
     Dates: start: 20190617, end: 20200113
  2. HUMIRA [Suspect]
     Active Substance: ADALIMUMAB
     Route: 058
     Dates: start: 20200206, end: 20200316

REACTIONS (11)
  - Negative thoughts [Unknown]
  - Jaw disorder [Not Recovered/Not Resolved]
  - Mass [Not Recovered/Not Resolved]
  - Crying [Unknown]
  - Contusion [Not Recovered/Not Resolved]
  - Traumatic shock [Not Recovered/Not Resolved]
  - Psychiatric symptom [Unknown]
  - Confusional state [Not Recovered/Not Resolved]
  - Fear [Unknown]
  - Fall [Recovered/Resolved]
  - Anger [Unknown]

NARRATIVE: CASE EVENT DATE: 202001
